FAERS Safety Report 9495337 (Version 1)
Quarter: 2013Q3

REPORT INFORMATION
  Report Type: Spontaneous
  Country: US (occurrence: US)
  Receive Date: 20130903
  Receipt Date: 20130903
  Transmission Date: 20140515
  Serious: Yes (Other)
  Sender: FDA-Public Use
  Company Number: US-GLAXOSMITHKLINE-A1039546A

PATIENT
  Age: 78 Year
  Sex: Female

DRUGS (5)
  1. ADVAIR [Suspect]
     Indication: ASTHMA
     Dosage: 1PUFF TWICE PER DAY
     Route: 055
  2. NIFEDIPINE [Concomitant]
  3. OXYBUTYNIN [Concomitant]
  4. ZAFIRLUKAST [Concomitant]
  5. PRO-AIR [Concomitant]

REACTIONS (4)
  - Cataract operation [Recovering/Resolving]
  - Cataract [Recovering/Resolving]
  - Retinal disorder [Recovering/Resolving]
  - Underdose [Unknown]
